FAERS Safety Report 6031054-7 (Version None)
Quarter: 2008Q4

REPORT INFORMATION
  Report Type: 
  Country: None (occurrence: None)
  Receive Date: 20081222
  Receipt Date: 20081009
  Transmission Date: 20090506
  Serious: No
  Sender: FDA-Public Use
  Company Number: ALL1-2008-02937

PATIENT
  Age: 7 Year
  Sex: Male
  Weight: 24.5 kg

DRUGS (1)
  1. VYVANSE [Suspect]
     Indication: ATTENTION DEFICIT/HYPERACTIVITY DISORDER
     Dosage: MG, 1X/DAY:QD, ORAL ; HALF OF CAPSULE, 1X/DAY:QD, ORAL
     Route: 048
     Dates: start: 20070101, end: 20070101

REACTIONS (6)
  - ANOREXIA [None]
  - DISTURBANCE IN SOCIAL BEHAVIOUR [None]
  - DRUG EFFECT INCREASED [None]
  - DRUG PRESCRIBING ERROR [None]
  - FEELING ABNORMAL [None]
  - FLUID INTAKE REDUCED [None]
